FAERS Safety Report 6052672-6 (Version None)
Quarter: 2009Q1

REPORT INFORMATION
  Report Type: 
  Country: None (occurrence: None)
  Receive Date: 20090127
  Receipt Date: 20090114
  Transmission Date: 20090719
  Serious: Yes (Other)
  Sender: FDA-Public Use
  Company Number: CL-PFIZER INC-2008099409

PATIENT

DRUGS (1)
  1. DOSTINEX [Suspect]
     Indication: PITUITARY TUMOUR BENIGN
     Route: 048
     Dates: start: 20080401, end: 20081015

REACTIONS (6)
  - ANAEMIA [None]
  - DIZZINESS [None]
  - EYELID PTOSIS [None]
  - HOT FLUSH [None]
  - MENORRHAGIA [None]
  - VISUAL IMPAIRMENT [None]
